FAERS Safety Report 18178032 (Version 2)
Quarter: 2024Q4

REPORT INFORMATION
  Report Type: Spontaneous
  Country: DE (occurrence: DE)
  Receive Date: 20200821
  Receipt Date: 20241227
  Transmission Date: 20250115
  Serious: Yes (Death, Hospitalization, Other)
  Sender: SAMSUNG BIOEPIS
  Company Number: None

PATIENT
  Age: 14 Year
  Sex: Male

DRUGS (19)
  1. ADALIMUMAB [Suspect]
     Active Substance: ADALIMUMAB
     Indication: Immunosuppressant drug therapy
     Dosage: UNKNOWN;
     Route: 065
  2. ETOPOSIDE [Suspect]
     Active Substance: ETOPOSIDE
     Indication: Allogenic stem cell transplantation
     Dosage: AT DAY 18,16 AND 15;
     Route: 065
  3. CYCLOPHOSPHAMIDE [Suspect]
     Active Substance: CYCLOPHOSPHAMIDE
     Indication: Allogenic stem cell transplantation
     Dosage: AT DAY 16 TO 18;
     Route: 065
  4. LAPINE T-LYMPHOCYTE IMMUNE GLOBULIN [Suspect]
     Active Substance: LAPINE T-LYMPHOCYTE IMMUNE GLOBULIN
     Indication: Allogenic stem cell transplantation
     Dosage: 1 ? 9 MG/KG, DAY 10 TO 11;
     Route: 065
  5. LAPINE T-LYMPHOCYTE IMMUNE GLOBULIN [Suspect]
     Active Substance: LAPINE T-LYMPHOCYTE IMMUNE GLOBULIN
     Indication: Bone marrow conditioning regimen
     Dosage: 1 ? 1 MG/KG, DAY 12;
     Route: 065
  6. LAPINE T-LYMPHOCYTE IMMUNE GLOBULIN [Suspect]
     Active Substance: LAPINE T-LYMPHOCYTE IMMUNE GLOBULIN
     Indication: Immunosuppressant drug therapy
     Dosage: 1 ? 10 MG/KG, AT DAY 9;
     Route: 065
  7. METHYLPREDNISOLONE [Suspect]
     Active Substance: METHYLPREDNISOLONE
     Indication: Immunosuppressant drug therapy
     Dosage: UNKNOWN;
     Route: 065
  8. SIROLIMUS [Suspect]
     Active Substance: SIROLIMUS
     Indication: Immunosuppressant drug therapy
     Dosage: UNKNOWN;
     Route: 065
  9. CLOFARABINE [Suspect]
     Active Substance: CLOFARABINE
     Indication: Allogenic stem cell transplantation
     Dosage: AT DAY 16 TO 18;
     Route: 065
  10. FLUDARABINE [Suspect]
     Active Substance: FLUDARABINE PHOSPHATE
     Indication: Allogenic stem cell transplantation
     Dosage: DAY 5 TO 8;
     Route: 065
  11. RUXOLITINIB [Suspect]
     Active Substance: RUXOLITINIB
     Indication: Immunosuppressant drug therapy
     Dosage: UNKNOWN;
     Route: 065
  12. PREDNISOLONE [Suspect]
     Active Substance: PREDNISOLONE
     Indication: Immunosuppressant drug therapy
     Dosage: UNKNOWN;
     Route: 065
  13. MYCOPHENOLATE MOFETIL [Suspect]
     Active Substance: MYCOPHENOLATE MOFETIL
     Indication: Immunosuppressant drug therapy
     Dosage: UNKNOWN;
     Route: 065
  14. MYCOPHENOLATE MOFETIL [Suspect]
     Active Substance: MYCOPHENOLATE MOFETIL
     Indication: Prophylaxis against graft versus host disease
  15. MYCOPHENOLATE MOFETIL [Suspect]
     Active Substance: MYCOPHENOLATE MOFETIL
     Indication: Graft versus host disease
  16. MYCOPHENOLATE MOFETIL [Suspect]
     Active Substance: MYCOPHENOLATE MOFETIL
     Indication: Prophylaxis against graft versus host disease
  17. MYCOPHENOLATE MOFETIL [Suspect]
     Active Substance: MYCOPHENOLATE MOFETIL
     Indication: Stem cell transplant
  18. THIOTEPA [Suspect]
     Active Substance: THIOTEPA
     Indication: Allogenic stem cell transplantation
     Dosage: 2 DOSAGES 5 MG/KG DAILY;
     Route: 065
  19. MELPHALAN [Suspect]
     Active Substance: MELPHALAN
     Indication: Allogenic stem cell transplantation
     Dosage: 70 MG/M2 DAY 2 TO 3;
     Route: 065

REACTIONS (9)
  - Bacterial sepsis [Fatal]
  - Multiple organ dysfunction syndrome [Fatal]
  - Acute graft versus host disease in skin [Recovered/Resolved]
  - Graft versus host disease in liver [Unknown]
  - Graft versus host disease in gastrointestinal tract [Unknown]
  - Hyperbilirubinaemia [Unknown]
  - Adenovirus infection [Unknown]
  - Graft versus host disease in skin [Unknown]
  - Off label use [Unknown]
